FAERS Safety Report 16839879 (Version 1)
Quarter: 2019Q4

REPORT INFORMATION
  Report Type: Spontaneous
  Country: US (occurrence: US)
  Receive Date: 20190922
  Receipt Date: 20190922
  Transmission Date: 20200122
  Serious: No
  Sender: FDA-Public Use
  Company Number: None

PATIENT
  Age: 30 Year
  Sex: Male
  Weight: 112.5 kg

DRUGS (5)
  1. ADDERALL [Concomitant]
     Active Substance: AMPHETAMINE ASPARTATE\AMPHETAMINE SULFATE\DEXTROAMPHETAMINE SACCHARATE\DEXTROAMPHETAMINE SULFATE
  2. FLONASE SENSIMIST ALLERGY RELIEF [Concomitant]
     Active Substance: FLUTICASONE FUROATE
  3. XCLEAR NASAL SPRAY [Concomitant]
  4. TOPIRAMATE 25MG TABLETS [Suspect]
     Active Substance: TOPIRAMATE
     Indication: MIGRAINE
     Dosage: ?          QUANTITY:1 TABLET(S);?
     Route: 048
     Dates: start: 20190918
  5. RIZATRIPTAN. [Concomitant]
     Active Substance: RIZATRIPTAN

REACTIONS (1)
  - Sinus congestion [None]

NARRATIVE: CASE EVENT DATE: 20190920
